FAERS Safety Report 9729684 (Version 1)
Quarter: 2013Q4

REPORT INFORMATION
  Report Type: Spontaneous
  Country: US (occurrence: US)
  Receive Date: 20131204
  Receipt Date: 20131204
  Transmission Date: 20140711
  Serious: No
  Sender: FDA-Public Use
  Company Number: US-GILEAD-2009-0020912

PATIENT
  Sex: Female

DRUGS (16)
  1. LETAIRIS [Suspect]
     Indication: PULMONARY HYPERTENSION
     Route: 048
     Dates: start: 20090115
  2. REVATIO [Concomitant]
  3. LASIX [Concomitant]
  4. LISINOPRIL [Concomitant]
  5. COZAAR [Concomitant]
  6. CLONIDINE [Concomitant]
  7. HYDRALAZINE [Concomitant]
  8. DILTIAZEM [Concomitant]
  9. METOLAZONE [Concomitant]
  10. NEXIUM [Concomitant]
  11. XANAX [Concomitant]
  12. POTASSIUM CHLORIDE [Concomitant]
  13. ASPIRIN [Concomitant]
  14. CENTRUM SILVER [Concomitant]
  15. TYLENOL [Concomitant]
  16. DARVOCET [Concomitant]

REACTIONS (1)
  - Constipation [Not Recovered/Not Resolved]
